FAERS Safety Report 21211299 (Version 1)
Quarter: 2022Q3

REPORT INFORMATION
  Report Type: Report from Study
  Country: US (occurrence: US)
  Receive Date: 20220815
  Receipt Date: 20220815
  Transmission Date: 20221026
  Serious: No
  Sender: FDA-Public Use
  Company Number: US-NOVARTISTESTPH-NVSC2022US183924

PATIENT
  Sex: Male

DRUGS (3)
  1. ENTRESTO [Suspect]
     Active Substance: SACUBITRIL\VALSARTAN
     Indication: Chronic left ventricular failure
     Dosage: UNK UNK, BID (49-51MG BY MOUTH TWICE DAILY APPROXIMATELY ONE MONTH AGO)
     Route: 048
  2. ENTRESTO [Suspect]
     Active Substance: SACUBITRIL\VALSARTAN
     Indication: Hypertension
     Dosage: UNK UNK, BID (97-103MG STRENGTH BY MOUTH TWICE DAILY)
     Route: 048
     Dates: start: 202207
  3. JARDIANCE [Concomitant]
     Active Substance: EMPAGLIFLOZIN
     Indication: Blood glucose increased
     Dosage: UNK
     Route: 065

REACTIONS (3)
  - Presyncope [Unknown]
  - Dizziness [Unknown]
  - Diarrhoea [Unknown]
